FAERS Safety Report 18206579 (Version 1)
Quarter: 2020Q3

REPORT INFORMATION
  Report Type: Spontaneous
  Country: US (occurrence: US)
  Receive Date: 20200827
  Receipt Date: 20200827
  Transmission Date: 20201103
  Serious: Yes (Other)
  Sender: FDA-Public Use
  Company Number: None

PATIENT
  Age: 61 Year
  Sex: Male
  Weight: 79.4 kg

DRUGS (9)
  1. ALBUTEROL INHALER  2 PUFFS [Concomitant]
     Dates: start: 20200821, end: 20200827
  2. INSULIN SLIDING SCALE SQ AC AND HS [Concomitant]
     Dates: start: 20200824, end: 20200827
  3. MELATONIN 5 MG PO HS PRN [Concomitant]
     Dates: start: 20200822, end: 20200827
  4. GUAIFENESIN 100 MG PO Q4H PRN [Concomitant]
     Dates: start: 20200821, end: 20200827
  5. REMDESIVIR. [Suspect]
     Active Substance: REMDESIVIR
     Indication: COVID-19
     Route: 042
  6. DEXAMETHASONE 6 MG PO DAILY [Concomitant]
     Dates: start: 20200821, end: 20200827
  7. HEPARIN 5000 UNITS SQ Q8H [Concomitant]
     Dates: start: 20200821, end: 20200827
  8. ACETAMINOPHEN 650 MG PO Q6H PRN [Concomitant]
     Dates: start: 20200821, end: 20200827
  9. LANTUS INSULIN 16 UNITS SQ DAILY [Concomitant]
     Dates: start: 20200825, end: 20200827

REACTIONS (11)
  - Aspartate aminotransferase increased [None]
  - Liver function test increased [None]
  - Pneumonia [None]
  - Chills [None]
  - Asthenia [None]
  - Chest discomfort [None]
  - Pyrexia [None]
  - Productive cough [None]
  - Diarrhoea [None]
  - Dyspnoea [None]
  - Alanine aminotransferase increased [None]

NARRATIVE: CASE EVENT DATE: 20200826
